FAERS Safety Report 6020899-5 (Version None)
Quarter: 2008Q4

REPORT INFORMATION
  Report Type: 
  Country: None (occurrence: None)
  Receive Date: 20081229
  Receipt Date: 20081215
  Transmission Date: 20090506
  Serious: Yes (Death)
  Sender: FDA-Public Use
  Company Number: US-PFIZER INC-2008153728

PATIENT
  Age: 43 Year
  Sex: Male

DRUGS (7)
  1. GABAPENTIN [Suspect]
  2. MORPHINE HCL ELIXIR [Suspect]
  3. LISINOPRIL [Suspect]
  4. NAPROXEN AND NAPROXEN SODIUM [Suspect]
  5. BACLOFEN [Suspect]
  6. VENLAFAXINE [Suspect]
  7. ETHANOL [Suspect]

REACTIONS (3)
  - CARDIAC ARREST [None]
  - COMPLETED SUICIDE [None]
  - RESPIRATORY ARREST [None]
